FAERS Safety Report 23733480 (Version 1)
Quarter: 2024Q2

REPORT INFORMATION
  Report Type: Report from Study
  Country: NL (occurrence: NL)
  Receive Date: 20240411
  Receipt Date: 20240411
  Transmission Date: 20240716
  Serious: Yes (Death, Other)
  Sender: FDA-Public Use
  Company Number: NL-VER-202400027

PATIENT
  Age: 88 Year
  Sex: Male

DRUGS (2)
  1. TRIPTORELIN PAMOATE [Suspect]
     Active Substance: TRIPTORELIN PAMOATE
     Indication: Prostate cancer
     Dosage: 22.5 MILLIGRAM(S), 1 IN 6 MONTH
     Route: 030
     Dates: start: 20231117
  2. TRIPTORELIN PAMOATE [Suspect]
     Active Substance: TRIPTORELIN PAMOATE
     Indication: Prostate cancer
     Dosage: 22.5 MILLIGRAM(S), 1 IN 6 MONTH
     Route: 030
     Dates: start: 20230517

REACTIONS (1)
  - Death [Fatal]

NARRATIVE: CASE EVENT DATE: 20240128
